FAERS Safety Report 12874982 (Version 1)
Quarter: 2016Q4

REPORT INFORMATION
  Report Type: Report from Study
  Country: AU (occurrence: AU)
  Receive Date: 20161023
  Receipt Date: 20161023
  Transmission Date: 20170207
  Serious: Yes (Death)
  Sender: FDA-Public Use
  Company Number: AU-ASTRAZENECA-2016SF10153

PATIENT
  Age: 29283 Day
  Sex: Male

DRUGS (2)
  1. COSUDEX [Suspect]
     Active Substance: BICALUTAMIDE
     Dosage: 50.0MG UNKNOWN
     Route: 048
     Dates: start: 20130625
  2. ZOLADEX [Suspect]
     Active Substance: GOSERELIN ACETATE
     Dosage: 10.8MG UNKNOWN
     Route: 058
     Dates: start: 20130625

REACTIONS (1)
  - Death [Fatal]

NARRATIVE: CASE EVENT DATE: 20160622
